FAERS Safety Report 7622615-X (Version None)
Quarter: 2011Q3

REPORT INFORMATION
  Report Type: 
  Country: None (occurrence: None)
  Receive Date: 20110712
  Receipt Date: 20110706
  Transmission Date: 20111222
  Serious: Yes (Death, Hospitalization)
  Sender: FDA-Public Use
  Company Number: 2009002433

PATIENT
  Age: 61 Year
  Sex: Male
  Weight: 55 kg

DRUGS (6)
  1. ISOPTIN [Concomitant]
  2. CP-751, 871 [Suspect]
     Indication: NON-SMALL CELL LUNG CANCER
     Dosage: 1100 MG, CYCLIC, IV NOS
     Route: 042
     Dates: start: 20090414, end: 20090528
  3. ERLOTINIB HYDROCHLORIDE [Suspect]
     Indication: NON-SMALL CELL LUNG CANCER
     Dosage: 150 MG, UID/OD, ORAL
     Route: 048
     Dates: start: 20090414, end: 20090616
  4. CARBOPLATIN [Concomitant]
  5. GEMZAR [Concomitant]
  6. SPIRIVA [Concomitant]

REACTIONS (3)
  - NON-SMALL CELL LUNG CANCER [None]
  - TRACHEO-OESOPHAGEAL FISTULA [None]
  - NEOPLASM PROGRESSION [None]
